FAERS Safety Report 7078822-0 (Version None)
Quarter: 2010Q4

REPORT INFORMATION
  Report Type: 
  Country: None (occurrence: None)
  Receive Date: 20101101
  Receipt Date: 20101101
  Transmission Date: 20110411
  Serious: Yes (Death)
  Sender: FDA-Public Use
  Company Number: None

PATIENT
  Age: 66 Year
  Sex: Female
  Weight: 75 kg

DRUGS (1)
  1. VISAPAQUE 320 MG/ML GE HEALTHCARE [Suspect]
     Indication: COMPUTERISED TOMOGRAM
     Dosage: 100 ML X1 IV BOLUS
     Route: 040
     Dates: start: 20101028, end: 20101028

REACTIONS (3)
  - ARRHYTHMIA [None]
  - CARDIO-RESPIRATORY ARREST [None]
  - HYPOTENSION [None]
